FAERS Safety Report 6338100-1 (Version None)
Quarter: 2009Q3

REPORT INFORMATION
  Report Type: 
  Country: None (occurrence: None)
  Receive Date: 20090902
  Receipt Date: 20090826
  Transmission Date: 20100115
  Serious: Yes (Other)
  Sender: FDA-Public Use
  Company Number: PHHY2009JP35275

PATIENT
  Age: 51 Year
  Sex: Male

DRUGS (2)
  1. CYCLOSPORINE [Suspect]
     Indication: RENAL TRANSPLANT
     Dosage: UNK
  2. PREDNISOLONE [Concomitant]
     Indication: RENAL TRANSPLANT

REACTIONS (7)
  - GAIT DISTURBANCE [None]
  - HUMAN T-CELL LYMPHOTROPIC VIRUS TYPE I INFECTION [None]
  - HYPOKINESIA [None]
  - NEUROGENIC BLADDER [None]
  - SENSORY DISTURBANCE [None]
  - SPASTIC PARAPLEGIA [None]
  - TROPICAL SPASTIC PARESIS [None]
